FAERS Safety Report 4352967-8 (Version None)
Quarter: 2004Q2

REPORT INFORMATION
  Report Type: 
  Country: None (occurrence: None)
  Receive Date: 20040504
  Receipt Date: 20040426
  Transmission Date: 20050107
  Serious: Yes (Disabling)
  Sender: FDA-Public Use
  Company Number: US-MERCK-0404USA02213

PATIENT
  Age: 72 Year
  Sex: Female

DRUGS (4)
  1. ZETIA [Suspect]
     Indication: BLOOD CHOLESTEROL INCREASED
     Route: 048
     Dates: start: 20040423, end: 20040426
  2. ZESTORETIC [Concomitant]
     Route: 065
  3. SYNTHROID [Concomitant]
     Route: 065
  4. XENICAL [Concomitant]
     Route: 065

REACTIONS (1)
  - KERATOCONJUNCTIVITIS SICCA [None]
